FAERS Safety Report 8013164-8 (Version None)
Quarter: 2011Q4

REPORT INFORMATION
  Report Type: 
  Country: None (occurrence: None)
  Receive Date: 20111229
  Receipt Date: 20111222
  Transmission Date: 20120403
  Serious: No
  Sender: FDA-Public Use
  Company Number: US-PFIZER INC-2011291844

PATIENT
  Sex: Female

DRUGS (1)
  1. PIROXICAM [Suspect]
     Dosage: UNK

REACTIONS (2)
  - GASTROENTERITIS [None]
  - DIARRHOEA [None]
